FAERS Safety Report 9709396 (Version 2)
Quarter: 2013Q4

REPORT INFORMATION
  Report Type: Report from Study
  Country: US (occurrence: US)
  Receive Date: 20131126
  Receipt Date: 20131127
  Transmission Date: 20140711
  Serious: Yes (Other)
  Sender: FDA-Public Use
  Company Number: US-ROCHE-1307455

PATIENT
  Sex: Male

DRUGS (3)
  1. ZELBORAF [Suspect]
     Indication: MALIGNANT MELANOMA
     Dosage: 3 TABS IN AM AND 3 TABS IN PM
     Route: 065
     Dates: start: 201211, end: 20131104
  2. ZELBORAF [Suspect]
     Dosage: 4 TABS IN AM AND 4 TABS IN PM
     Route: 065
     Dates: start: 201211
  3. PLAQUENIL [Concomitant]

REACTIONS (9)
  - Basal cell carcinoma [Not Recovered/Not Resolved]
  - Neoplasm progression [Not Recovered/Not Resolved]
  - Rash [Recovered/Resolved]
  - Pyrexia [Recovered/Resolved]
  - Malaise [Recovered/Resolved]
  - Hyperkeratosis [Recovered/Resolved]
  - Eye pain [Recovered/Resolved]
  - Pain [Recovered/Resolved]
  - Drug ineffective [Unknown]
